FAERS Safety Report 13278540 (Version 1)
Quarter: 2017Q1

REPORT INFORMATION
  Report Type: Spontaneous
  Country: DE (occurrence: DE)
  Receive Date: 20170228
  Receipt Date: 20170228
  Transmission Date: 20170428
  Serious: Yes (Other)
  Sender: FDA-Public Use
  Company Number: DE-MYLANLABS-2017M1011548

PATIENT

DRUGS (7)
  1. VINDESINE [Concomitant]
     Active Substance: VINDESINE
     Indication: NEUROBLASTOMA
     Dosage: PART OF N5 CYCLE; RECEIVED AT AN INTERVAL OF THREE WEEKS
  2. IFOSFAMIDE. [Suspect]
     Active Substance: IFOSFAMIDE
     Indication: NEUROBLASTOMA
     Dosage: PART OF N6 CYCLE; RECEIVED AT AN INTERVAL OF THREE WEEKS
     Route: 065
  3. VINCRISTINE [Concomitant]
     Active Substance: VINCRISTINE
     Indication: NEUROBLASTOMA
     Dosage: PART OF N6 CYCLE; RECEIVED AT AN INTERVAL OF THREE WEEKS
  4. CISPLATIN. [Suspect]
     Active Substance: CISPLATIN
     Indication: NEUROBLASTOMA
     Dosage: PART OF N5 CYCLE; RECEIVED AT AN INTERVAL OF THREE WEEKS
     Route: 065
  5. ETOPOSIDE. [Suspect]
     Active Substance: ETOPOSIDE
     Indication: NEUROBLASTOMA
     Dosage: PART OF N5 CYCLE; RECEIVED AT AN INTERVAL OF THREE WEEKS
     Route: 065
  6. DACARBAZINE. [Concomitant]
     Active Substance: DACARBAZINE
     Indication: NEUROBLASTOMA
     Dosage: PART OF N6 CYCLE; RECEIVED AT AN INTERVAL OF THREE WEEKS
  7. DOXORUBICIN [Concomitant]
     Active Substance: DOXORUBICIN
     Indication: NEUROBLASTOMA
     Dosage: PART OF N6 CYCLE; RECEIVED AT AN INTERVAL OF THREE WEEKS

REACTIONS (1)
  - Encephalopathy [Recovered/Resolved]
